FAERS Safety Report 24558056 (Version 1)
Quarter: 2024Q4

REPORT INFORMATION
  Report Type: Spontaneous
  Country: US (occurrence: US)
  Receive Date: 20241028
  Receipt Date: 20241028
  Transmission Date: 20250115
  Serious: Yes (Other)
  Sender: RADIUS PHARM
  Company Number: US-RADIUS HEALTH INC.-2024US008664

PATIENT
  Sex: Female

DRUGS (1)
  1. TYMLOS [Suspect]
     Active Substance: ABALOPARATIDE
     Indication: Bone density abnormal
     Dosage: UNK
     Dates: start: 202101, end: 2022

REACTIONS (2)
  - Papillary thyroid cancer [Unknown]
  - Thyroid mass [Unknown]

NARRATIVE: CASE EVENT DATE: 20240701
